FAERS Safety Report 4916738-3 (Version None)
Quarter: 2006Q1

REPORT INFORMATION
  Report Type: 
  Country: None (occurrence: None)
  Receive Date: 20060214
  Receipt Date: 20060201
  Transmission Date: 20060701
  Serious: Yes (Hospitalization)
  Sender: FDA-Public Use
  Company Number: 2006016188

PATIENT
  Age: 68 Year
  Sex: Female

DRUGS (27)
  1. DIFLUCAN [Suspect]
     Indication: FUNGAL INFECTION
     Dosage: 150 MG (150 MG, 1 IN 1 D), ORAL
     Route: 048
     Dates: start: 20051016, end: 20051019
  2. METHADONE HCL [Suspect]
     Indication: ILL-DEFINED DISORDER
     Dosage: 10 MG (10 MG, 1 IN 1 D), ORAL
     Route: 048
     Dates: start: 20050228
  3. EFFEXOR [Concomitant]
  4. NORVASC [Concomitant]
  5. INOTYOL (HAMAMELIS WATER, ICHTHAMMOL, TITANIC HYDROXIDE, TITANIUM DIOX [Concomitant]
  6. NITROMEX (GLYCERYL TRINITRATE) [Concomitant]
  7. LEVOTHYROXINE SODIUM [Concomitant]
  8. KAJOS (POTASSIUM CITRATE) [Concomitant]
  9. IMPUGAN (FUROSEMIDE) [Concomitant]
  10. CANESTEN (CLOTRIMAZOLE) [Concomitant]
  11. ACETAMINOPHEN [Concomitant]
  12. PRIMPERAN TAB [Concomitant]
  13. HEPARIN [Concomitant]
  14. TIENAM (CILASTATIN, IMIPENEM) [Concomitant]
  15. SOLUVIT (VITAMINS NOS) [Concomitant]
  16. VITALIPID (VITAMINS NOS) [Concomitant]
  17. TRACEL (ELECTROLYTES NOS) [Concomitant]
  18. FENURIL (UREA) [Concomitant]
  19. ANDAPSIN (SUCRALFATE) [Concomitant]
  20. ZOFRAN [Concomitant]
  21. SODIUM CHLORIDE 0.9% [Concomitant]
  22. KETOGAN (KETOBEMIDONE  HYDROCHLORIDE) [Concomitant]
  23. ACTILYSE BOEHRINGE INGELHEIM  (ALTEPASE) [Concomitant]
  24. SIDURO (KETOPROFEN) [Concomitant]
  25. NUTRIFLEX  BRAUN  (AMINO ACIDS NOS, CARBOHYDRATES NOS, ELECTROLYTES NO [Concomitant]
  26. SELOKEN ZOC (METOPROLOL SUCCINATE) [Concomitant]
  27. HIRUDOID (HEPARINOID) [Concomitant]

REACTIONS (2)
  - DYSPNOEA [None]
  - UNEVALUABLE EVENT [None]
